FAERS Safety Report 16333222 (Version 2)
Quarter: 2020Q3

REPORT INFORMATION
  Report Type: Spontaneous
  Country: US (occurrence: US)
  Receive Date: 20190520
  Receipt Date: 20200819
  Transmission Date: 20201102
  Serious: Yes (Other)
  Sender: FDA-Public Use
  Company Number: US-GILEAD-2019-0407969

PATIENT
  Age: 67 Year
  Sex: Female
  Weight: 99.77 kg

DRUGS (21)
  1. BIKTARVY [Concomitant]
     Active Substance: BICTEGRAVIR SODIUM\EMTRICITABINE\TENOFOVIR ALAFENAMIDE FUMARATE
  2. PSYLLIUM [PLANTAGO AFRA] [Concomitant]
     Active Substance: PLANTAGO AFRA SEED
  3. STARCH [Concomitant]
     Active Substance: STARCH
  4. VASOTEC [ENALAPRILAT] [Concomitant]
     Active Substance: ENALAPRILAT
  5. LEXAPRO [Concomitant]
     Active Substance: ESCITALOPRAM OXALATE
  6. POLYETHYLENE GLYCOL [MACROGOL] [Concomitant]
     Active Substance: POLYETHYLENE GLYCOLS
  7. PREDNISONE. [Concomitant]
     Active Substance: PREDNISONE
  8. CLEARLAX [Concomitant]
     Active Substance: POLYETHYLENE GLYCOL 3350
  9. ATRIPLA [Suspect]
     Active Substance: EFAVIRENZ\EMTRICITABINE\TENOFOVIR DISOPROXIL FUMARATE
     Indication: HIV INFECTION
     Dosage: UNK
     Route: 048
     Dates: start: 20120322, end: 20180328
  10. PRAVASTATIN. [Concomitant]
     Active Substance: PRAVASTATIN
  11. ESCITALOPRAM [Concomitant]
     Active Substance: ESCITALOPRAM OXALATE
  12. CONJUGATED ESTROGENS [Concomitant]
     Active Substance: ESTROGENS, CONJUGATED
  13. PNEUMOVAX 23 [Concomitant]
     Active Substance: PNEUMOCOCCAL VACCINE, POLYVALENT 23
  14. HYDROCORTISONE. [Concomitant]
     Active Substance: HYDROCORTISONE
  15. TRIUMEQ [Concomitant]
     Active Substance: ABACAVIR SULFATE\DOLUTEGRAVIR SODIUM\LAMIVUDINE
  16. LINZESS [Concomitant]
     Active Substance: LINACLOTIDE
  17. ENALAPRIL MALEATE. [Concomitant]
     Active Substance: ENALAPRIL MALEATE
  18. LOPERAMIDE [Concomitant]
     Active Substance: LOPERAMIDE
  19. CALCIUM + VIT D [Concomitant]
     Active Substance: CALCIUM\VITAMIN D
  20. GABAPENTIN. [Concomitant]
     Active Substance: GABAPENTIN
  21. PRAVASTATIN SODIUM. [Concomitant]
     Active Substance: PRAVASTATIN SODIUM

REACTIONS (8)
  - Economic problem [Not Recovered/Not Resolved]
  - Emotional distress [Not Recovered/Not Resolved]
  - Anxiety [Not Recovered/Not Resolved]
  - Anhedonia [Not Recovered/Not Resolved]
  - Bone density decreased [Unknown]
  - Burning sensation [Unknown]
  - Pain [Not Recovered/Not Resolved]
  - Osteopenia [Not Recovered/Not Resolved]

NARRATIVE: CASE EVENT DATE: 201606
